FAERS Safety Report 4281638-1 (Version None)
Quarter: 2004Q1

REPORT INFORMATION
  Report Type: 
  Country: None (occurrence: None)
  Receive Date: 20040120
  Receipt Date: 20031103
  Transmission Date: 20041129
  Serious: No
  Sender: FDA-Public Use
  Company Number: 2003-11-0507

PATIENT
  Age: 77 Year
  Sex: Female
  Weight: 49.8957 kg

DRUGS (1)
  1. CLARINEX [Suspect]
     Indication: SINUS DISORDER
     Dosage: 5MG QD ORAL
     Route: 048
     Dates: start: 20031020, end: 20031031

REACTIONS (1)
  - RHINORRHOEA [None]
